FAERS Safety Report 16290455 (Version 1)
Quarter: 2019Q2

REPORT INFORMATION
  Report Type: Spontaneous
  Country: KP (occurrence: KP)
  Receive Date: 20190509
  Receipt Date: 20190509
  Transmission Date: 20190711
  Serious: Yes (Other)
  Sender: FDA-Public Use
  Company Number: KP-DENTSPLY-2019SCDP000279

PATIENT
  Age: 42 Month
  Sex: Female

DRUGS (1)
  1. PRILOCAINE AND LIDOCAINE [Suspect]
     Active Substance: LIDOCAINE\PRILOCAINE
     Indication: LOCAL ANAESTHESIA
     Dosage: EMLA, AN EUTECTIC MIXTURE
     Route: 061

REACTIONS (2)
  - Methaemoglobinaemia [Unknown]
  - Seizure [Unknown]
